FAERS Safety Report 18555606 (Version 1)
Quarter: 2020Q4

REPORT INFORMATION
  Report Type: Spontaneous
  Country: ES (occurrence: ES)
  Receive Date: 20201127
  Receipt Date: 20201127
  Transmission Date: 20210114
  Serious: Yes (Hospitalization)
  Sender: FDA-Public Use
  Company Number: ES-ASTRAZENECA-2020SF55931

PATIENT
  Sex: Female

DRUGS (1)
  1. OMEPRAZOL (2141A) [Suspect]
     Active Substance: OMEPRAZOLE
     Route: 048
     Dates: start: 20201005, end: 20201113

REACTIONS (1)
  - Fluid retention [Recovering/Resolving]

NARRATIVE: CASE EVENT DATE: 20201106
